FAERS Safety Report 11804791 (Version 2)
Quarter: 2016Q1

REPORT INFORMATION
  Report Type: Spontaneous
  Country: US (occurrence: US)
  Receive Date: 20151205
  Receipt Date: 20160101
  Transmission Date: 20160525
  Serious: Yes (Life-Threatening, Hospitalization, Other)
  Sender: FDA-Public Use
  Company Number: US-ABBVIE-15K-163-1513551-00

PATIENT
  Age: 27 Year
  Sex: Female
  Weight: 63.11 kg

DRUGS (7)
  1. MOBIC [Concomitant]
     Active Substance: MELOXICAM
     Indication: RHEUMATOID ARTHRITIS
  2. HUMIRA [Suspect]
     Active Substance: ADALIMUMAB
     Indication: RHEUMATOID ARTHRITIS
     Route: 058
     Dates: start: 201503, end: 201511
  3. CYMBALTA [Concomitant]
     Active Substance: DULOXETINE HYDROCHLORIDE
     Indication: ANXIETY
  4. ALBUTEROL. [Concomitant]
     Active Substance: ALBUTEROL
     Indication: PRODUCT USED FOR UNKNOWN INDICATION
     Dosage: INHALER
  5. METHOTREXATE [Suspect]
     Active Substance: METHOTREXATE
     Indication: RHEUMATOID ARTHRITIS
     Route: 065
     Dates: start: 2014, end: 201511
  6. BACLOFEN. [Concomitant]
     Active Substance: BACLOFEN
     Indication: MUSCLE SPASMS
     Dosage: INHALER
  7. FOLIC ACID. [Concomitant]
     Active Substance: FOLIC ACID
     Indication: VITAMIN SUPPLEMENTATION

REACTIONS (21)
  - Gallbladder non-functioning [Not Recovered/Not Resolved]
  - Influenza like illness [Recovered/Resolved]
  - Hepatic enzyme increased [Recovering/Resolving]
  - Muscle atrophy [Not Recovered/Not Resolved]
  - Feeling abnormal [Unknown]
  - Histoplasmosis [Recovering/Resolving]
  - Pulmonary fibrosis [Not Recovered/Not Resolved]
  - Lung infection [Not Recovered/Not Resolved]
  - Night sweats [Recovered/Resolved]
  - Cholecystitis infective [Not Recovered/Not Resolved]
  - Blood bilirubin increased [Recovering/Resolving]
  - Nausea [Recovered/Resolved]
  - Pneumonia [Unknown]
  - Sinusitis [Unknown]
  - Pain [Recovering/Resolving]
  - Immune system disorder [Not Recovered/Not Resolved]
  - Acute respiratory distress syndrome [Recovered/Resolved]
  - Headache [Recovered/Resolved]
  - Sepsis [Recovering/Resolving]
  - Decreased appetite [Recovered/Resolved]
  - Lipase increased [Recovering/Resolving]

NARRATIVE: CASE EVENT DATE: 2015
